FAERS Safety Report 5806615-8 (Version None)
Quarter: 2008Q3

REPORT INFORMATION
  Report Type: 
  Country: None (occurrence: None)
  Receive Date: 20080710
  Receipt Date: 20080630
  Transmission Date: 20090109
  Serious: Yes (Hospitalization, Other)
  Sender: FDA-Public Use
  Company Number: PHHY2008FR12881

PATIENT
  Sex: Female

DRUGS (5)
  1. VOLTAREN [Suspect]
     Dosage: 50 MG, QID
     Route: 048
     Dates: start: 20080512, end: 20080515
  2. PROFENID [Suspect]
     Dosage: 100 MG/DAY
     Route: 048
     Dates: start: 20080520, end: 20080521
  3. SANDOCAL [Concomitant]
     Dosage: UNK
     Dates: start: 20080512, end: 20080515
  4. TARDYFERON [Concomitant]
     Dosage: UNK
     Dates: start: 20080512, end: 20080515
  5. DAFALGAN [Concomitant]
     Dosage: UNK
     Dates: start: 20080512, end: 20080515

REACTIONS (17)
  - ASTHENIA [None]
  - COMA [None]
  - CSF CELL COUNT ABNORMAL [None]
  - CSF PROTEIN ABNORMAL [None]
  - CSF TEST ABNORMAL [None]
  - CSF WHITE BLOOD CELL COUNT POSITIVE [None]
  - DISTURBANCE IN ATTENTION [None]
  - HEADACHE [None]
  - HEPATOMEGALY [None]
  - HYPERTHERMIA [None]
  - MENINGITIS ASEPTIC [None]
  - MUSCLE CONTRACTIONS INVOLUNTARY [None]
  - POST LUMBAR PUNCTURE SYNDROME [None]
  - PYELOCALIECTASIS [None]
  - SOMNOLENCE [None]
  - STREPTOCOCCAL IDENTIFICATION TEST POSITIVE [None]
  - VISUAL IMPAIRMENT [None]
